FAERS Safety Report 23308429 (Version 1)
Quarter: 2023Q4

REPORT INFORMATION
  Report Type: Report from Study
  Country: US (occurrence: US)
  Receive Date: 20231218
  Receipt Date: 20231218
  Transmission Date: 20240110
  Serious: Yes (Other)
  Sender: FDA-Public Use
  Company Number: US-PFIZER INC-PV202300201534

PATIENT

DRUGS (2)
  1. METRONIDAZOLE [Suspect]
     Active Substance: METRONIDAZOLE
     Dosage: 6 GRAM/M2, CYCLIC 3.5 TO 4.0 HOURS PRIOR TO EACH WEEKLY DOSE OF IRRADIATION
     Route: 048
  2. DEXAMETHASONE [Concomitant]
     Active Substance: DEXAMETHASONE
     Dosage: UNK, CYCLIC

REACTIONS (1)
  - Deafness [Recovering/Resolving]
